FAERS Safety Report 11396970 (Version 2)
Quarter: 2015Q3

REPORT INFORMATION
  Report Type: Report from Study
  Country: AR (occurrence: AR)
  Receive Date: 20150819
  Receipt Date: 20150901
  Transmission Date: 20151125
  Serious: No
  Sender: FDA-Public Use
  Company Number: PHHY2015AR098660

PATIENT
  Sex: Female

DRUGS (5)
  1. NICOTINELL [Concomitant]
     Active Substance: NICOTINE
     Indication: LUNG NEOPLASM MALIGNANT
     Dosage: 1 DF, QD (20CM2)
     Route: 062
  2. NICOTINELL [Concomitant]
     Active Substance: NICOTINE
     Indication: SMOKING CESSATION THERAPY
  3. ULTIBRO BREEZHALER [Suspect]
     Active Substance: GLYCOPYRRONIUM\INDACATEROL
     Dosage: 1 DF, BID
     Route: 065
  4. AMLODIPINE W/VALSARTAN [Concomitant]
     Active Substance: AMLODIPINE\VALSARTAN
     Indication: PRODUCT USED FOR UNKNOWN INDICATION
     Dosage: 160 MG, QD
     Route: 065
  5. ULTIBRO BREEZHALER [Suspect]
     Active Substance: GLYCOPYRRONIUM\INDACATEROL
     Indication: CHRONIC OBSTRUCTIVE PULMONARY DISEASE
     Dosage: 1 DF, QD
     Route: 065
     Dates: start: 201508

REACTIONS (1)
  - Off label use [Unknown]
